FAERS Safety Report 21939702 (Version 1)
Quarter: 2023Q1

REPORT INFORMATION
  Report Type: Report from Study
  Country: US (occurrence: US)
  Receive Date: 20230201
  Receipt Date: 20230201
  Transmission Date: 20230417
  Serious: No
  Sender: FDA-Public Use
  Company Number: US-EXELIXIS-CABO-22048698

PATIENT
  Sex: Male

DRUGS (23)
  1. CABOMETYX [Suspect]
     Active Substance: CABOZANTINIB S-MALATE
     Indication: Renal cell carcinoma
     Dosage: 40 MG, QD
     Route: 048
     Dates: start: 202108, end: 202112
  2. INLYTA [Concomitant]
     Active Substance: AXITINIB
     Dosage: UNK
  3. AMLODIPINE BESYLATE [Concomitant]
     Active Substance: AMLODIPINE BESYLATE
     Dosage: UNK
  4. COENZYME Q10 [Concomitant]
     Active Substance: DIETARY SUPPLEMENT\UBIDECARENONE
     Dosage: UNK
  5. ESZOPICLONE [Concomitant]
     Active Substance: ESZOPICLONE
     Dosage: UNK
  6. FLUTICASONE [Concomitant]
     Active Substance: FLUTICASONE
     Dosage: UNK
  7. MAGNESIUM [Concomitant]
     Active Substance: MAGNESIUM
     Dosage: UNK
  8. PANTOPRAZOLE [Concomitant]
     Active Substance: PANTOPRAZOLE
     Dosage: UNK
  9. ROSUVASTATIN [Concomitant]
     Active Substance: ROSUVASTATIN
     Dosage: UNK
  10. TELMISARTAN [Concomitant]
     Active Substance: TELMISARTAN
     Dosage: UNK
  11. TRAMADOL HCL [Concomitant]
     Active Substance: TRAMADOL HYDROCHLORIDE
     Dosage: UNK
  12. TUMS ULTRA [Concomitant]
     Active Substance: CALCIUM CARBONATE
     Dosage: UNK
  13. HERBALS\TURMERIC [Concomitant]
     Active Substance: HERBALS\TURMERIC
     Dosage: UNK
  14. VITAMIN B12 [Concomitant]
     Active Substance: CYANOCOBALAMIN
     Dosage: UNK
  15. VITAMIN D3 [Concomitant]
     Active Substance: CHOLECALCIFEROL
     Dosage: UNK
  16. CARVEDILOL [Concomitant]
     Active Substance: CARVEDILOL
  17. DEXAMETHASONE [Concomitant]
     Active Substance: DEXAMETHASONE
  18. ESOMEPRAZOLE [Concomitant]
     Active Substance: ESOMEPRAZOLE
  19. HYDROMORPHONE [Concomitant]
     Active Substance: HYDROMORPHONE
  20. LOSARTAN POTASSIUM [Concomitant]
     Active Substance: LOSARTAN POTASSIUM
  21. NIFEDIPINE [Concomitant]
     Active Substance: NIFEDIPINE
  22. PROMETHAZINE [Concomitant]
     Active Substance: PROMETHAZINE HYDROCHLORIDE
  23. HYDROCODONE [Concomitant]
     Active Substance: HYDROCODONE
     Dosage: UNK

REACTIONS (8)
  - Confusional state [Not Recovered/Not Resolved]
  - Drug ineffective [Unknown]
  - Asthenia [Not Recovered/Not Resolved]
  - Fatigue [Not Recovered/Not Resolved]
  - Nausea [Not Recovered/Not Resolved]
  - Dizziness [Not Recovered/Not Resolved]
  - Rash [Not Recovered/Not Resolved]
  - Constipation [Not Recovered/Not Resolved]
